FAERS Safety Report 8875513 (Version 1)
Quarter: 2012Q4

REPORT INFORMATION
  Report Type: 
  Country: KR (occurrence: KR)
  Receive Date: 20121023
  Receipt Date: 20121023
  Transmission Date: 20130627
  Serious: Yes (Hospitalization, Other)
  Sender: FDA-Public Use
  Company Number: PHHY2012KR086975

PATIENT
  Age: 36 Year
  Sex: Male

DRUGS (8)
  1. CLOZAPINE [Suspect]
     Dosage: 25 mg
  2. CLOZAPINE [Suspect]
     Dosage: 400 mg
  3. CLOZAPINE [Suspect]
     Dosage: 500 mg
  4. OLANZAPINE [Concomitant]
     Indication: SCHIZOPHRENIA, PARANOID TYPE
     Dosage: 30 mg
  5. OLANZAPINE [Concomitant]
     Dosage: 10 mg
  6. OLANZAPINE [Concomitant]
     Dosage: 30 mg
  7. OLANZAPINE [Concomitant]
     Dosage: UNK UKN, UNK
  8. LAXATIVES [Concomitant]

REACTIONS (18)
  - Cardiac failure [Unknown]
  - Ejection fraction decreased [Recovered/Resolved]
  - Ventricular hypokinesia [Unknown]
  - Brain natriuretic peptide increased [Unknown]
  - Cardiomegaly [Unknown]
  - Enterocolitis [Unknown]
  - Pericardial effusion [Recovering/Resolving]
  - Pleural effusion [Unknown]
  - Ileus paralytic [Unknown]
  - Electrocardiogram T wave abnormal [Unknown]
  - Myocarditis [Unknown]
  - Dyspnoea [Recovering/Resolving]
  - Pyrexia [Unknown]
  - Cough [Recovering/Resolving]
  - C-reactive protein increased [Recovered/Resolved]
  - Tachycardia [Recovering/Resolving]
  - Eosinophil count increased [Unknown]
  - White blood cell count increased [Unknown]
